FAERS Safety Report 9847661 (Version 2)
Quarter: 2014Q1

REPORT INFORMATION
  Report Type: Spontaneous
  Country: IN (occurrence: IN)
  Receive Date: 20140128
  Receipt Date: 20140131
  Transmission Date: 20141002
  Serious: Yes (Hospitalization)
  Sender: FDA-Public Use
  Company Number: IN-009507513-1401IND011714

PATIENT
  Age: 56 Year
  Sex: 0

DRUGS (1)
  1. JANUVIA [Suspect]
     Dosage: UNK, QD
     Route: 048
     Dates: end: 201401

REACTIONS (1)
  - Pancreatic disorder [Not Recovered/Not Resolved]
